FAERS Safety Report 5141374-6 (Version None)
Quarter: 2006Q4

REPORT INFORMATION
  Report Type: 
  Country: None (occurrence: None)
  Receive Date: 20061101
  Receipt Date: 20060918
  Transmission Date: 20070319
  Serious: Yes (Hospitalization)
  Sender: FDA-Public Use
  Company Number: US-GLAXOSMITHKLINE-A0620504A

PATIENT
  Age: 75 Year
  Sex: Female

DRUGS (5)
  1. IMITREX [Suspect]
     Indication: MIGRAINE
     Dosage: 50MG SINGLE DOSE
     Route: 048
     Dates: start: 20060912, end: 20060912
  2. METOPROLOL TARTRATE [Concomitant]
  3. ZOCOR [Concomitant]
  4. ALLEGRA [Concomitant]
  5. ASTELIN [Concomitant]

REACTIONS (4)
  - COGNITIVE DISORDER [None]
  - DISORIENTATION [None]
  - FEELING ABNORMAL [None]
  - MEMORY IMPAIRMENT [None]
